FAERS Safety Report 24308783 (Version 1)
Quarter: 2024Q3

REPORT INFORMATION
  Report Type: Spontaneous
  Country: US (occurrence: US)
  Receive Date: 20240911
  Receipt Date: 20240911
  Transmission Date: 20241017
  Serious: No
  Sender: INCYTE
  Company Number: US-INCYTE CORPORATION-2024IN009115

PATIENT

DRUGS (1)
  1. OPZELURA [Suspect]
     Active Substance: RUXOLITINIB PHOSPHATE
     Dosage: UNK, BID (APPLY A THIN LAYER TO EX ON FACE AND BODY TWICE DAILY)
     Route: 061
     Dates: start: 20240801

REACTIONS (2)
  - Hypersensitivity [Unknown]
  - Condition aggravated [Unknown]
